FAERS Safety Report 8850523 (Version 1)
Quarter: 2012Q4

REPORT INFORMATION
  Report Type: 
  Country: US (occurrence: US)
  Receive Date: 20121019
  Receipt Date: 20121019
  Transmission Date: 20130627
  Serious: Yes (Hospitalization)
  Sender: FDA-Public Use
  Company Number: US-ROCHE-1144456

PATIENT
  Age: 68 Year
  Sex: Female

DRUGS (4)
  1. TRASTUZUMAB [Suspect]
     Indication: BREAST CANCER
     Dosage: 1 st course for 18 weeks
     Route: 065
  2. TRASTUZUMAB [Suspect]
     Route: 065
  3. DOCETAXEL [Concomitant]
     Indication: BREAST CANCER
  4. CARBOPLATIN [Concomitant]
     Indication: BREAST CANCER

REACTIONS (1)
  - Dehydration [Recovered/Resolved]
